FAERS Safety Report 26020802 (Version 1)
Quarter: 2025Q4

REPORT INFORMATION
  Report Type: Spontaneous
  Country: EU (occurrence: EU)
  Receive Date: 20251110
  Receipt Date: 20251110
  Transmission Date: 20260118
  Serious: Yes (Other)
  Sender: BAYER HEALTHCARE PHARMACEUTICALS INC.
  Company Number: EU-BAYER-2025A146592

PATIENT

DRUGS (2)
  1. NUBEQA [Suspect]
     Active Substance: DAROLUTAMIDE
  2. DOCETAXEL [Suspect]
     Active Substance: DOCETAXEL

REACTIONS (6)
  - Laryngeal nerve dysfunction [None]
  - Polyneuropathy [None]
  - Nail dystrophy [None]
  - Dysphonia [None]
  - Limb discomfort [None]
  - Fatigue [None]
